FAERS Safety Report 17566090 (Version 1)
Quarter: 2020Q1

REPORT INFORMATION
  Report Type: Spontaneous
  Country: US (occurrence: US)
  Receive Date: 20200320
  Receipt Date: 20200320
  Transmission Date: 20200409
  Serious: Yes (Death)
  Sender: FDA-Public Use
  Company Number: None

PATIENT
  Age: 48 Year
  Sex: Male
  Weight: 87 kg

DRUGS (2)
  1. WARFARIN [Suspect]
     Active Substance: WARFARIN
  2. LOVENOX [Suspect]
     Active Substance: ENOXAPARIN SODIUM

REACTIONS (11)
  - Aphasia [None]
  - Poor venous access [None]
  - Seizure [None]
  - Hypoxia [None]
  - Respiratory distress [None]
  - Hemiparesis [None]
  - International normalised ratio increased [None]
  - Fallot^s tetralogy [None]
  - Cerebral haemorrhage [None]
  - Tracheal haemorrhage [None]
  - Cardiac arrest [None]

NARRATIVE: CASE EVENT DATE: 20191130
